FAERS Safety Report 17890716 (Version 2)
Quarter: 2020Q4

REPORT INFORMATION
  Report Type: Spontaneous
  Country: CA (occurrence: CA)
  Receive Date: 20200612
  Receipt Date: 20201124
  Transmission Date: 20210113
  Serious: Yes (Other)
  Sender: FDA-Public Use
  Company Number: CA-SA-2020SA147419

PATIENT

DRUGS (4)
  1. HUMIRA [Suspect]
     Active Substance: ADALIMUMAB
     Indication: RHEUMATOID ARTHRITIS
     Dosage: UNK
     Route: 058
     Dates: end: 2015
  2. METHOTREXATE. [Concomitant]
     Active Substance: METHOTREXATE
     Indication: PRODUCT USED FOR UNKNOWN INDICATION
     Dosage: 0.6 ML, QW
     Dates: start: 20191115
  3. KEVZARA [Suspect]
     Active Substance: SARILUMAB
     Indication: PRODUCT USED FOR UNKNOWN INDICATION
     Dosage: 1 DF, QOW
     Route: 065
     Dates: start: 2015, end: 201906
  4. ARTHROTEC [Concomitant]
     Active Substance: DICLOFENAC SODIUM\MISOPROSTOL
     Indication: PRODUCT USED FOR UNKNOWN INDICATION
     Dosage: 2 DF, QD
     Route: 048
     Dates: start: 201910

REACTIONS (5)
  - Spinal stenosis [Unknown]
  - Knee arthroplasty [Unknown]
  - Diverticulitis [Unknown]
  - Mammoplasty [Unknown]
  - Drug ineffective [Unknown]
